FAERS Safety Report 6616941-0 (Version None)
Quarter: 2010Q1

REPORT INFORMATION
  Report Type: 
  Country: None (occurrence: None)
  Receive Date: 20100301
  Receipt Date: 20100216
  Transmission Date: 20100710
  Serious: Yes (Hospitalization, Other)
  Sender: FDA-Public Use
  Company Number: RENA-1000619

PATIENT
  Age: 64 Year
  Sex: Female

DRUGS (15)
  1. RENAGEL [Suspect]
     Indication: HYPERPHOSPHATAEMIA
     Dosage: 1.6 G, ORAL; 4 G, TID, ORAL
     Route: 048
     Dates: start: 19981101, end: 20091001
  2. RENAGEL [Suspect]
     Indication: HYPERPHOSPHATAEMIA
     Dosage: 1.6 G, ORAL; 4 G, TID, ORAL
     Route: 048
     Dates: start: 20091001
  3. ATERAX (HYDROXYZINE HYDROCHLORIDE) UNKNOWN [Concomitant]
  4. ALTERNAGEL (ALUMINIUM HYDROXIDE GEL, DRIED) UNKNOWN [Concomitant]
  5. TYLENOL (PARACETAMOL) UNKNOWN [Concomitant]
  6. HYDROCODONE BITARTRATE [Concomitant]
  7. TOPROL-XL [Concomitant]
  8. ALBUTEROL (SALBUTAMOL) INHALATION GAS [Concomitant]
  9. COLACE (DOCUSATE SODIUM) UNKNOWN [Concomitant]
  10. ASPIRIN [Concomitant]
  11. PROCARDIA XL (NIFEDIPINE) UNKNOWN [Concomitant]
  12. NEPHROCAPS (FOLIC ACID, VITAMINS NOS) UNKNOWN [Concomitant]
  13. PREVACID [Concomitant]
  14. PROMETHAZINE (PROMETHAZINE) TABLET [Concomitant]
  15. VASOTEC [Concomitant]

REACTIONS (5)
  - CONGENITAL CYSTIC KIDNEY DISEASE [None]
  - INSOMNIA [None]
  - KERATOSIS FOLLICULAR [None]
  - ORAL ADMINISTRATION COMPLICATION [None]
  - RENAL PAIN [None]
